FAERS Safety Report 16285139 (Version 1)
Quarter: 2019Q2

REPORT INFORMATION
  Report Type: Spontaneous
  Country: QA (occurrence: QA)
  Receive Date: 20190508
  Receipt Date: 20190508
  Transmission Date: 20190711
  Serious: Yes (Hospitalization, Other)
  Sender: FDA-Public Use
  Company Number: QA-TAKEDA-2019TEU003656

PATIENT
  Age: 50 Year
  Sex: Male

DRUGS (4)
  1. LANSOPRAZOLE. [Suspect]
     Active Substance: LANSOPRAZOLE
     Indication: PROPHYLAXIS
     Dosage: 30 MILLIGRAM, QD
     Route: 050
  2. HEPARIN [Suspect]
     Active Substance: HEPARIN SODIUM
     Indication: THROMBOSIS PROPHYLAXIS
  3. LANSOPRAZOLE. [Suspect]
     Active Substance: LANSOPRAZOLE
     Indication: UPPER GASTROINTESTINAL HAEMORRHAGE
  4. HEPARIN [Suspect]
     Active Substance: HEPARIN SODIUM
     Indication: PROPHYLAXIS
     Dosage: UNK UNK, BID
     Route: 058

REACTIONS (12)
  - Thrombocytopenia [Recovered/Resolved]
  - Abdominal pain [Recovering/Resolving]
  - Urinary tract infection [Unknown]
  - Platelet count decreased [Recovering/Resolving]
  - Oedema [Unknown]
  - Colitis [Unknown]
  - Thrombocytosis [Unknown]
  - Diarrhoea [Recovering/Resolving]
  - Rib fracture [Unknown]
  - Anisochromia [Unknown]
  - Acute kidney injury [Recovering/Resolving]
  - Pathogen resistance [Unknown]
